FAERS Safety Report 4501818-7 (Version None)
Quarter: 2004Q4

REPORT INFORMATION
  Report Type: 
  Country: None (occurrence: None)
  Receive Date: 20041115
  Receipt Date: 20041115
  Transmission Date: 20050328
  Serious: Yes (Life-Threatening, Hospitalization)
  Sender: FDA-Public Use
  Company Number: None

PATIENT
  Age: 71 Year
  Sex: Male
  Weight: 67.1 kg

DRUGS (25)
  1. WARFARIN [Suspect]
  2. MIRTAZAPINE [Concomitant]
  3. NOVAHISTINE DH EQUIV SYRUP [Concomitant]
  4. LORATADINE [Concomitant]
  5. MILK OF MAGNESIA TAB [Concomitant]
  6. LUBRIDERM [Concomitant]
  7. ANTACID CONCENTRATE [Concomitant]
  8. FERROUS SULFATE TAB [Concomitant]
  9. CILOSTAZOL [Concomitant]
  10. MORPHINE SULFATE [Concomitant]
  11. MORPHINE [Concomitant]
  12. TERAZOSIN HCL [Concomitant]
  13. MAGNESIUM CITRATE [Concomitant]
  14. GATIFLOXACIN [Concomitant]
  15. CHLORDIAZEPOXIDE [Concomitant]
  16. CODEINE SULFATE [Concomitant]
  17. COLONOSCOPY SOLUTION [Concomitant]
  18. FLEETS ENEMA [Concomitant]
  19. DOCUSATE [Concomitant]
  20. ACETAMINOPHEN [Concomitant]
  21. OMEPRAZOLE [Concomitant]
  22. FLUNISOLIDE [Concomitant]
  23. PROCHLORPERAZINE [Concomitant]
  24. FLUNISOLIDE [Concomitant]
  25. RANITIDINE [Concomitant]

REACTIONS (4)
  - ANAEMIA [None]
  - FAECAL OCCULT BLOOD POSITIVE [None]
  - HAEMOPTYSIS [None]
  - INTERNATIONAL NORMALISED RATIO INCREASED [None]
